FAERS Safety Report 8079583-9 (Version None)
Quarter: 2012Q1

REPORT INFORMATION
  Report Type: 
  Country: None (occurrence: None)
  Receive Date: 20120128
  Receipt Date: 20110830
  Transmission Date: 20120608
  Serious: No
  Sender: FDA-Public Use
  Company Number: US-ABBOTT-11P-163-0850406-00

PATIENT
  Sex: Male

DRUGS (5)
  1. HUMIRA [Suspect]
     Route: 058
  2. ATENOLOL [Concomitant]
     Indication: PRODUCT USED FOR UNKNOWN INDICATION
     Dosage: DAILY
     Route: 048
  3. HUMIRA [Suspect]
     Indication: PSORIASIS
     Dosage: DAY 1
     Route: 058
     Dates: start: 20110805, end: 20110805
  4. HUMIRA [Suspect]
     Dosage: DAY 8
     Route: 058
  5. HUMIRA [Suspect]
     Dosage: DAY 22
     Route: 058

REACTIONS (6)
  - ABDOMINAL PAIN [None]
  - ASTHENIA [None]
  - PYREXIA [None]
  - NAUSEA [None]
  - DIARRHOEA [None]
  - VOMITING [None]
